FAERS Safety Report 9879910 (Version 5)
Quarter: 2014Q3

REPORT INFORMATION
  Report Type: Report from Study
  Country: FR (occurrence: FR)
  Receive Date: 20140206
  Receipt Date: 20140916
  Transmission Date: 20150326
  Serious: Yes (Hospitalization)
  Sender: FDA-Public Use
  Company Number: FR-ROCHE-1344947

PATIENT
  Age: 76 Year
  Sex: Female
  Weight: 66 kg

DRUGS (8)
  1. PACLITAXEL. [Suspect]
     Active Substance: PACLITAXEL
     Indication: OVARIAN CANCER
     Dosage: DOSE AT TIME OF EVENT 80 MG/M2?LAST DOSE ADMINISTERED BEFORE SAE ON 23/JAN/2014?4 WEEKS
     Route: 042
     Dates: start: 20131128, end: 20140204
  2. BEVACIZUMAB [Suspect]
     Active Substance: BEVACIZUMAB
     Indication: OVARIAN CANCER
     Dosage: DOSE AT TIME OF EVENT 80 MG/M2?LAST DOSE ADMINISTERED BEFORE SAE ON 23/JAN/2014? FOR A MAXIMUM OF 6
     Route: 042
     Dates: start: 20131212, end: 20140204
  3. XARELTO [Concomitant]
     Active Substance: RIVAROXABAN
     Route: 048
  4. APROVEL [Concomitant]
     Active Substance: IRBESARTAN
     Route: 048
  5. BISOPROLOL [Concomitant]
     Active Substance: BISOPROLOL
     Route: 048
  6. BEVACIZUMAB [Suspect]
     Active Substance: BEVACIZUMAB
     Dosage: FOR UP TO 1 YEAR
     Route: 042
     Dates: start: 20140317
  7. PACLITAXEL. [Suspect]
     Active Substance: PACLITAXEL
     Route: 042
     Dates: start: 20140317
  8. DOLIPRANE [Concomitant]
     Active Substance: ACETAMINOPHEN
     Indication: PAIN

REACTIONS (1)
  - Pneumothorax [Recovered/Resolved]

NARRATIVE: CASE EVENT DATE: 20140203
